FAERS Safety Report 22192793 (Version 1)
Quarter: 2023Q2

REPORT INFORMATION
  Report Type: Spontaneous
  Country: CN (occurrence: CN)
  Receive Date: 20230410
  Receipt Date: 20230410
  Transmission Date: 20230722
  Serious: Yes (Other)
  Sender: FDA-Public Use
  Company Number: CN-OTSUKA-2023_009054

PATIENT
  Age: 49 Year
  Sex: Male
  Weight: 75 kg

DRUGS (1)
  1. SAMSCA [Suspect]
     Active Substance: TOLVAPTAN
     Indication: Diuretic therapy
     Dosage: 15 MG, QD
     Route: 048
     Dates: start: 20230331, end: 20230403

REACTIONS (2)
  - Hepatic failure [Recovering/Resolving]
  - Product use in unapproved indication [Unknown]

NARRATIVE: CASE EVENT DATE: 20230331
